FAERS Safety Report 5936557-9 (Version None)
Quarter: 2008Q4

REPORT INFORMATION
  Report Type: 
  Country: None (occurrence: None)
  Receive Date: 20081030
  Receipt Date: 20081028
  Transmission Date: 20090506
  Serious: Yes (Hospitalization)
  Sender: FDA-Public Use
  Company Number: JP-B.I. PHARMACEUTICALS,INC./RIDGEFIELD-2008-BP-09069NB

PATIENT
  Sex: Male
  Weight: 71 kg

DRUGS (14)
  1. MICARDIS [Suspect]
     Indication: HYPERTENSION
     Dosage: 40MG
     Route: 048
     Dates: start: 20070313, end: 20080612
  2. ZANTAC 150 [Suspect]
     Indication: GASTRIC ULCER
     Dosage: 150MG
     Route: 048
     Dates: start: 20000703, end: 20080611
  3. LIPITOR [Suspect]
     Indication: HYPERLIPIDAEMIA
     Dosage: 10MG
     Route: 048
     Dates: start: 20050602, end: 20080611
  4. OPALMON [Suspect]
     Indication: LUMBAR SPINAL STENOSIS
     Dosage: 15MG
     Route: 048
     Dates: start: 20060620, end: 20080604
  5. FLUITRAN [Suspect]
     Indication: HYPERTENSION
     Dosage: 1ANZ
     Route: 048
     Dates: start: 20071009, end: 20080606
  6. LIPLE [Suspect]
     Indication: LUMBAR SPINAL STENOSIS
     Route: 058
     Dates: start: 20070920, end: 20080401
  7. CONIEL [Concomitant]
     Indication: HYPERTENSION
     Dosage: 4MG
     Route: 048
     Dates: start: 20020318
  8. EUGLUCON [Concomitant]
     Indication: DIABETES MELLITUS
     Dosage: 2.5MG
     Route: 048
     Dates: start: 20000501
  9. RENIVACE [Concomitant]
     Indication: HYPERTENSION
     Dosage: 5MG
     Route: 048
     Dates: start: 20000501
  10. BUFFERIN [Concomitant]
     Indication: CEREBRAL INFARCTION
     Route: 048
     Dates: start: 20000501, end: 20080609
  11. MAGNESIUM OXIDE [Concomitant]
     Indication: LARGE INTESTINE CARCINOMA
     Dosage: 1G
     Route: 048
     Dates: start: 20000703
  12. LAC-B [Concomitant]
     Indication: LARGE INTESTINE CARCINOMA
     Dosage: 3G
     Route: 048
     Dates: start: 20000703
  13. KELNAC [Concomitant]
     Indication: GASTRIC ULCER
     Dosage: 240MG
     Route: 048
     Dates: start: 20000703
  14. TENORMIN [Concomitant]
     Indication: HYPERTENSION
     Dosage: 25MG
     Route: 048
     Dates: start: 20050714

REACTIONS (2)
  - BLOOD IMMUNOGLOBULIN E INCREASED [None]
  - EOSINOPHIL COUNT INCREASED [None]
